FAERS Safety Report 9907966 (Version 1)
Quarter: 2014Q1

REPORT INFORMATION
  Report Type: Report from Study
  Country: FR (occurrence: FR)
  Receive Date: 20140219
  Receipt Date: 20140219
  Transmission Date: 20141002
  Serious: Yes (Death, Other)
  Sender: FDA-Public Use
  Company Number: FR-ROCHE-1349949

PATIENT
  Age: 72 Year
  Sex: Male

DRUGS (4)
  1. RITUXIMAB [Suspect]
     Indication: VASCULITIS
     Route: 042
  2. RITUXIMAB [Suspect]
     Indication: CRYOGLOBULINAEMIA
  3. PREDNISONE [Suspect]
     Indication: VASCULITIS
     Route: 065
  4. PREDNISONE [Suspect]
     Indication: CRYOGLOBULINAEMIA

REACTIONS (3)
  - Febrile neutropenia [Fatal]
  - Toxic shock syndrome [Fatal]
  - Off label use [Unknown]
